FAERS Safety Report 8874944 (Version 1)
Quarter: 2012Q4

REPORT INFORMATION
  Report Type: 
  Country: US (occurrence: US)
  Receive Date: 20121030
  Receipt Date: 20121030
  Transmission Date: 20130627
  Serious: No
  Sender: FDA-Public Use
  Company Number: US-AMGEN-USASP2012039808

PATIENT
  Sex: Female
  Weight: 29.93 kg

DRUGS (8)
  1. ENBREL [Suspect]
     Indication: PRODUCT USED FOR UNKNOWN INDICATION
     Dosage: 25 mg, 2 times/wk (72-96 hours apart)
     Route: 058
  2. XANAX [Concomitant]
     Dosage: 0.5 mg, UNK
  3. GABAPENTIN [Concomitant]
     Dosage: 600 mg, UNK
  4. FLONASE [Concomitant]
     Dosage: UNK
  5. VITAMIN D /00107901/ [Concomitant]
     Dosage: 5000 unit, UNK
  6. VECTICAL [Concomitant]
     Dosage: 3 MCG/GM
  7. PROZAC [Concomitant]
     Dosage: 40 mg, UNK
  8. CALCIUM [Concomitant]
     Dosage: 500 mg, UNK

REACTIONS (4)
  - Feeling hot [Unknown]
  - Erythema [Unknown]
  - Contusion [Unknown]
  - Oropharyngeal pain [Unknown]
